FAERS Safety Report 6869896-8 (Version None)
Quarter: 2010Q3

REPORT INFORMATION
  Report Type: 
  Country: None (occurrence: None)
  Receive Date: 20100722
  Receipt Date: 20080907
  Transmission Date: 20110219
  Serious: No
  Sender: FDA-Public Use
  Company Number: US-PFIZER INC-2008075755

PATIENT
  Sex: Female
  Weight: 74.84 kg

DRUGS (7)
  1. CHANTIX [Suspect]
     Indication: NICOTINE DEPENDENCE
     Dates: start: 20080905
  2. NEXIUM [Concomitant]
  3. ALPRAZOLAM [Concomitant]
  4. FOSAMAX [Concomitant]
  5. OXAPROZIN [Concomitant]
  6. VENLAFAXINE [Concomitant]
  7. TROSPIUM CHLORIDE [Concomitant]

REACTIONS (4)
  - HEADACHE [None]
  - INFLUENZA [None]
  - NAUSEA [None]
  - PAIN [None]
